FAERS Safety Report 6124508-6 (Version None)
Quarter: 2009Q1

REPORT INFORMATION
  Report Type: 
  Country: None (occurrence: None)
  Receive Date: 20090317
  Receipt Date: 20090317
  Transmission Date: 20090719
  Serious: No
  Sender: FDA-Public Use
  Company Number: None

PATIENT
  Age: 36 Year
  Sex: Female
  Weight: 60.782 kg

DRUGS (1)
  1. COUMADIN [Suspect]
     Indication: DEEP VEIN THROMBOSIS
     Dosage: 5MG QD PO
     Route: 048
     Dates: start: 20090310, end: 20090316

REACTIONS (6)
  - ABDOMINAL PAIN [None]
  - BURNING SENSATION [None]
  - DYSPEPSIA [None]
  - NAUSEA [None]
  - RASH MACULO-PAPULAR [None]
  - RASH PRURITIC [None]
